FAERS Safety Report 6256884-8 (Version None)
Quarter: 2009Q3

REPORT INFORMATION
  Report Type: 
  Country: None (occurrence: None)
  Receive Date: 20090706
  Receipt Date: 20090626
  Transmission Date: 20100115
  Serious: Yes (Other)
  Sender: FDA-Public Use
  Company Number: US-JNJCH-2009017692

PATIENT
  Age: 52 Year
  Sex: Female
  Weight: 86.2 kg

DRUGS (3)
  1. NATURAL CITRUS LISTERINE [Suspect]
     Indication: ALCOHOLIC
     Dosage: TEXT:TWO ONE LITER BOTTLES A DAY
     Route: 048
  2. SYNTHROID [Concomitant]
     Indication: DRUG USE FOR UNKNOWN INDICATION
     Dosage: TEXT:UNSPECIFIED
     Route: 065
  3. POTASSIUM CHLORIDE [Concomitant]
     Indication: DRUG USE FOR UNKNOWN INDICATION
     Dosage: TEXT:UNSPECIFIED
     Route: 065

REACTIONS (3)
  - DRUG ABUSE [None]
  - ECZEMA [None]
  - INCORRECT ROUTE OF DRUG ADMINISTRATION [None]
